FAERS Safety Report 4463534-X (Version None)
Quarter: 2004Q3

REPORT INFORMATION
  Report Type: 
  Country: None (occurrence: None)
  Receive Date: 20040928
  Receipt Date: 20040914
  Transmission Date: 20050211
  Serious: Yes (Hospitalization)
  Sender: FDA-Public Use
  Company Number: 2004AP04590

PATIENT
  Age: 54 Year
  Sex: Male

DRUGS (10)
  1. IRESSA [Suspect]
     Indication: NON-SMALL CELL LUNG CANCER
     Dosage: 250 MG DAILY PO
     Route: 048
     Dates: start: 20040725, end: 20040810
  2. LASIX [Concomitant]
  3. DIGOSIN [Concomitant]
  4. ASPARA K [Concomitant]
  5. GASTER [Concomitant]
  6. PODONIN S [Concomitant]
  7. LIPITOR [Concomitant]
  8. ZYLORIC ^FAES^ [Concomitant]
  9. MALFA [Concomitant]
  10. FOY [Concomitant]

REACTIONS (7)
  - CEREBRAL INFARCTION [None]
  - DEPRESSED LEVEL OF CONSCIOUSNESS [None]
  - DYSLALIA [None]
  - DYSPHAGIA [None]
  - EYELID PTOSIS [None]
  - GAIT DISTURBANCE [None]
  - TONGUE PARALYSIS [None]
